FAERS Safety Report 15450889 (Version 1)
Quarter: 2018Q3

REPORT INFORMATION
  Report Type: Spontaneous
  Country: US (occurrence: US)
  Receive Date: 20180926
  Receipt Date: 20180926
  Transmission Date: 20181010
  Serious: Yes (Hospitalization)
  Sender: FDA-Public Use
  Company Number: None

PATIENT
  Age: 12 Year
  Sex: Male
  Weight: 67.1 kg

DRUGS (4)
  1. PREDNISONE. [Suspect]
     Active Substance: PREDNISONE
     Dates: end: 20180912
  2. MERCAPTOPURINE. [Suspect]
     Active Substance: MERCAPTOPURINE
     Dates: end: 20180913
  3. VINCRISTINE SULFATE. [Suspect]
     Active Substance: VINCRISTINE SULFATE
     Dates: end: 20180823
  4. METHOTREXATE. [Suspect]
     Active Substance: METHOTREXATE
     Dates: end: 20180913

REACTIONS (13)
  - Nausea [None]
  - Encephalopathy [None]
  - Headache [None]
  - Mobility decreased [None]
  - Sensory processing disorder [None]
  - Pyrexia [None]
  - Motor dysfunction [None]
  - Vomiting [None]
  - Confusional state [None]
  - Gaze palsy [None]
  - Electroencephalogram abnormal [None]
  - Movement disorder [None]
  - Tremor [None]

NARRATIVE: CASE EVENT DATE: 20180914
